FAERS Safety Report 8830200 (Version 1)
Quarter: 2012Q4

REPORT INFORMATION
  Report Type: Spontaneous
  Country: US (occurrence: None)
  Receive Date: 20121009
  Receipt Date: 20121009
  Transmission Date: 20130627
  Serious: Yes (Life-Threatening, Hospitalization)
  Sender: FDA-Public Use
  Company Number: None

PATIENT
  Age: 64 Year
  Sex: Female
  Weight: 117.94 kg

DRUGS (5)
  1. METHYLPREDNISOLONE NOS [Suspect]
     Indication: EPIDURAL INJECTION
     Dates: start: 20120405, end: 20120405
  2. METHYLPREDNISOLONE NOS [Suspect]
     Indication: RADIOFREQUENCY ABLATION
     Dates: start: 20120405, end: 20120405
  3. METHYLPREDNISOLONE NOS [Suspect]
     Indication: EPIDURAL INJECTION
     Dates: start: 20120417, end: 20120417
  4. METHYLPREDNISOLONE NOS [Suspect]
     Indication: RADIOFREQUENCY ABLATION
     Dates: start: 20120417, end: 20120417
  5. LOCAL ANESTHETIC [Concomitant]

REACTIONS (15)
  - Osteomyelitis [None]
  - Back pain [None]
  - Vomiting [None]
  - Movement disorder [None]
  - Chills [None]
  - Restlessness [None]
  - Communication disorder [None]
  - Septic shock [None]
  - Apparent death [None]
  - Impaired self-care [None]
  - Blood pressure fluctuation [None]
  - Haematocrit decreased [None]
  - Abscess [None]
  - Product quality issue [None]
  - Meningitis fungal [None]
